FAERS Safety Report 12476601 (Version 1)
Quarter: 2016Q2

REPORT INFORMATION
  Report Type: Report from Study
  Country: BR (occurrence: BR)
  Receive Date: 20160617
  Receipt Date: 20160617
  Transmission Date: 20160815
  Serious: Yes (Other)
  Sender: FDA-Public Use
  Company Number: PHHY2016BR082416

PATIENT
  Age: 65 Year
  Sex: Female
  Weight: 66 kg

DRUGS (1)
  1. ACLASTA [Suspect]
     Active Substance: ZOLEDRONIC ACID
     Indication: PATHOLOGICAL FRACTURE
     Dosage: 5 MG, Q12MO
     Route: 042
     Dates: start: 20130620

REACTIONS (11)
  - Dyspnoea [Unknown]
  - Syncope [Unknown]
  - Pyrexia [Unknown]
  - Rhinitis [Unknown]
  - Sinusitis [Unknown]
  - Cough [Unknown]
  - Secretion discharge [Unknown]
  - Bronchitis [Recovered/Resolved]
  - Weight decreased [Unknown]
  - Respiratory failure [Unknown]
  - Muscle atrophy [Unknown]

NARRATIVE: CASE EVENT DATE: 201507
